FAERS Safety Report 6861303-4 (Version None)
Quarter: 2010Q3

REPORT INFORMATION
  Report Type: 
  Country: None (occurrence: None)
  Receive Date: 20100720
  Receipt Date: 20100709
  Transmission Date: 20110219
  Serious: No
  Sender: FDA-Public Use
  Company Number: GB-ABBOTT-08P-167-0487336-00

PATIENT
  Sex: Female
  Weight: 62 kg

DRUGS (1)
  1. HUMIRA [Suspect]
     Indication: RHEUMATOID ARTHRITIS
     Dates: start: 20080401

REACTIONS (4)
  - DYSGEUSIA [None]
  - MOUTH HAEMORRHAGE [None]
  - RASH [None]
  - SALIVA ALTERED [None]
